FAERS Safety Report 10270012 (Version 5)
Quarter: 2015Q1

REPORT INFORMATION
  Report Type: Report from Study
  Country: HK (occurrence: HK)
  Receive Date: 20140701
  Receipt Date: 20150127
  Transmission Date: 20150720
  Serious: Yes (Hospitalization)
  Sender: FDA-Public Use
  Company Number: HK-B.I. PHARMACEUTICALS,INC./RIDGEFIELD-2014-BI-26337BI

PATIENT
  Age: 51 Year
  Sex: Female
  Weight: 68.2 kg

DRUGS (33)
  1. PARACETAMOL [Concomitant]
     Active Substance: ACETAMINOPHEN
     Route: 065
     Dates: start: 20140619, end: 20140710
  2. CARBOPLATIN. [Concomitant]
     Active Substance: CARBOPLATIN
     Dosage: 460 MG
     Route: 042
     Dates: start: 20140711, end: 20140711
  3. PIRITON [Concomitant]
     Active Substance: CHLORPHENIRAMINE MALEATE
     Indication: PREMEDICATION
     Dosage: 10 MG
     Route: 042
     Dates: start: 20140711, end: 20140711
  4. VITAMIN B12 [Concomitant]
     Active Substance: CYANOCOBALAMIN
     Indication: PREMEDICATION
     Dosage: 1 MG
     Route: 030
     Dates: start: 20140616, end: 20140616
  5. FOLIC ACID. [Concomitant]
     Active Substance: FOLIC ACID
     Indication: PREMEDICATION
     Dosage: 5 MG
     Route: 048
     Dates: start: 20140620, end: 20140715
  6. PEPCIDINE [Concomitant]
     Active Substance: FAMOTIDINE
     Indication: PROPHYLAXIS AGAINST GASTROINTESTINAL ULCER
     Dosage: 20 MG
     Route: 048
     Dates: start: 20140617
  7. THYMOL [Concomitant]
     Active Substance: THYMOL
     Indication: STOMATITIS
     Dosage: FORMULATION: GARGLE COMPOUND
     Route: 002
     Dates: start: 20140528, end: 20140617
  8. TRANEXAMIC ACID. [Concomitant]
     Active Substance: TRANEXAMIC ACID
     Dosage: 250 MG
     Route: 065
     Dates: start: 20140625
  9. VOLTAREN [Concomitant]
     Active Substance: DICLOFENAC SODIUM
     Indication: PAIN
     Dosage: 100 MG
     Route: 048
     Dates: start: 20140610, end: 20140623
  10. AFATINIB [Suspect]
     Active Substance: AFATINIB
     Indication: NON-SMALL CELL LUNG CANCER
     Dosage: 40 MG
     Route: 048
     Dates: start: 20140521, end: 20140611
  11. MAXOLON [Concomitant]
     Active Substance: METOCLOPRAMIDE HYDROCHLORIDE
     Route: 065
     Dates: start: 20140710
  12. MORPHINE [Concomitant]
     Active Substance: MORPHINE
     Indication: PAIN
     Route: 065
     Dates: start: 20140621
  13. LORAZEPAM. [Concomitant]
     Active Substance: LORAZEPAM
     Indication: INSOMNIA
     Route: 065
     Dates: start: 20140625
  14. PEMETREXED DISODIUM [Concomitant]
     Active Substance: PEMETREXED DISODIUM
     Dosage: 660 MG
     Route: 042
     Dates: start: 20140711, end: 20140711
  15. KENALOG IN ORABASE [Concomitant]
     Active Substance: TRIAMCINOLONE ACETONIDE
     Indication: STOMATITIS
     Dosage: STRENGTH: 0.1%
     Route: 048
     Dates: start: 20140528, end: 20140617
  16. THYMOL [Concomitant]
     Active Substance: THYMOL
     Indication: STOMATITIS
  17. TRANEXAMIC ACID. [Concomitant]
     Active Substance: TRANEXAMIC ACID
     Indication: HAEMOPTYSIS
     Route: 065
     Dates: start: 20140603
  18. ZOFRAN [Concomitant]
     Active Substance: ONDANSETRON HYDROCHLORIDE
     Dosage: 8 MG
     Route: 042
     Dates: start: 20140711, end: 20140711
  19. AQUEOUS [Concomitant]
     Indication: PROPHYLAXIS
     Route: 065
     Dates: start: 20140625
  20. CARBOPLATIN. [Concomitant]
     Active Substance: CARBOPLATIN
     Indication: CHEMOTHERAPY
     Dosage: 460 MG
     Route: 042
     Dates: start: 20140620, end: 20140620
  21. PEMETREXED DISODIUM [Concomitant]
     Active Substance: PEMETREXED DISODIUM
     Indication: CHEMOTHERAPY
     Dosage: 660 MG
     Route: 042
     Dates: start: 20140620, end: 20140620
  22. ENZYPLEX [Concomitant]
     Indication: DECREASED APPETITE
     Route: 065
     Dates: start: 20140528, end: 20140619
  23. MAXOLON [Concomitant]
     Active Substance: METOCLOPRAMIDE HYDROCHLORIDE
     Indication: VOMITING
     Route: 065
     Dates: start: 20140620, end: 20140710
  24. MAXOLON [Concomitant]
     Active Substance: METOCLOPRAMIDE HYDROCHLORIDE
     Dosage: 10 MG
     Route: 065
     Dates: start: 20140610, end: 20140717
  25. PARACETAMOL [Concomitant]
     Active Substance: ACETAMINOPHEN
     Dosage: 500 NR
     Route: 065
     Dates: start: 20140710
  26. KENALOG IN ORABASE [Concomitant]
     Active Substance: TRIAMCINOLONE ACETONIDE
     Indication: STOMATITIS
  27. TRAMADOL HCL [Concomitant]
     Active Substance: TRAMADOL HYDROCHLORIDE
     Indication: PAIN
     Dosage: 50 MG
     Route: 065
     Dates: start: 20140603, end: 20140621
  28. ANUSOL [Concomitant]
     Indication: PRODUCT USED FOR UNKNOWN INDICATION
     Route: 065
     Dates: start: 20140614, end: 20140615
  29. PARACETAMOL [Concomitant]
     Active Substance: ACETAMINOPHEN
     Indication: PAIN
     Dosage: 500 MG
     Route: 048
     Dates: start: 20140617, end: 20140619
  30. DEXOMETHESONE [Concomitant]
     Indication: PREMEDICATION
     Dosage: 4 MG
     Route: 048
     Dates: start: 20140619, end: 20140621
  31. ZOFRAN [Concomitant]
     Active Substance: ONDANSETRON HYDROCHLORIDE
     Indication: PREMEDICATION
     Dosage: 8 MG
     Route: 042
     Dates: start: 20140620, end: 20140620
  32. NYSTATIN. [Concomitant]
     Active Substance: NYSTATIN
     Indication: ORAL CANDIDIASIS
     Dosage: 20 ML
     Route: 048
     Dates: start: 20140528, end: 20140610
  33. DEXOMETHESONE [Concomitant]
     Dosage: 4 MG
     Route: 048
     Dates: start: 20140711, end: 20140711

REACTIONS (16)
  - Dysphonia [Recovered/Resolved]
  - Hypokalaemia [Recovered/Resolved]
  - Urinary tract infection [Recovered/Resolved]
  - Sputum increased [Not Recovered/Not Resolved]
  - Hyperkalaemia [Recovered/Resolved]
  - Constipation [Not Recovered/Not Resolved]
  - Muscular weakness [Recovered/Resolved]
  - Vocal cord paralysis [Not Recovered/Not Resolved]
  - Pleural effusion [Not Recovered/Not Resolved]
  - Pain in extremity [Recovered/Resolved]
  - Supraventricular tachycardia [Recovered/Resolved]
  - Dyspnoea [Not Recovered/Not Resolved]
  - Cough [Not Recovered/Not Resolved]
  - Haemoptysis [Recovered/Resolved]
  - Escherichia sepsis [Recovered/Resolved]
  - Hyponatraemia [Recovered/Resolved]

NARRATIVE: CASE EVENT DATE: 20140603
